FAERS Safety Report 17155838 (Version 1)
Quarter: 2019Q4

REPORT INFORMATION
  Report Type: Spontaneous
  Country: FR (occurrence: FR)
  Receive Date: 20191215
  Receipt Date: 20191215
  Transmission Date: 20200122
  Serious: Yes (Hospitalization)
  Sender: FDA-Public Use
  Company Number: FR-TEVA-2019-FR-1151835

PATIENT
  Age: 26 Year
  Sex: Male

DRUGS (3)
  1. LORAZEPAM. [Suspect]
     Active Substance: LORAZEPAM
     Dosage: 10 X 2.5MG PER DAY
     Route: 048
     Dates: start: 2019
  2. ALPRAZOLAM. [Suspect]
     Active Substance: ALPRAZOLAM
     Route: 048
     Dates: start: 2019
  3. VALIUM [Suspect]
     Active Substance: DIAZEPAM
     Dosage: 10 X 10 MG PER DAY
     Route: 048
     Dates: start: 2019

REACTIONS (3)
  - Drug withdrawal syndrome [Recovered/Resolved]
  - Drug dependence [Recovering/Resolving]
  - Intentional product misuse [Recovering/Resolving]

NARRATIVE: CASE EVENT DATE: 2019
